FAERS Safety Report 9244749 (Version 2)
Quarter: 2013Q2

REPORT INFORMATION
  Report Type: Other
  Country: BR (occurrence: BR)
  Receive Date: 20130422
  Receipt Date: 20130625
  Transmission Date: 20140414
  Serious: No
  Sender: FDA-Public Use
  Company Number: PHHY2013BR038324

PATIENT
  Sex: Female

DRUGS (5)
  1. TEGRETOL CR [Suspect]
     Indication: CEREBROVASCULAR ACCIDENT
     Dosage: 200 MG, DAILY
     Route: 048
  2. TEGRETOL CR [Suspect]
     Indication: OFF LABEL USE
     Dosage: (200 MG+400MG) DAILY
     Route: 048
  3. AAS [Concomitant]
     Indication: ANTICOAGULANT THERAPY
     Dosage: 2 DF, AFTER LUNCH
     Route: 048
     Dates: start: 2006
  4. LABIRIN [Concomitant]
     Indication: LABYRINTHITIS
     Dosage: 24 MG, DAILY
     Route: 048
  5. APRAZ [Concomitant]
     Dosage: 0.5 DF, DAILY
     Dates: start: 2006

REACTIONS (1)
  - No adverse event [Unknown]
